FAERS Safety Report 6086146-3 (Version None)
Quarter: 2009Q1

REPORT INFORMATION
  Report Type: 
  Country: None (occurrence: None)
  Receive Date: 20090220
  Receipt Date: 20090217
  Transmission Date: 20090719
  Serious: Yes (Death, Hospitalization, Other)
  Sender: FDA-Public Use
  Company Number: US-BRISTOL-MYERS SQUIBB COMPANY-14452320

PATIENT
  Age: 74 Year
  Sex: Female

DRUGS (9)
  1. IXEMPRA KIT [Suspect]
     Indication: BREAST CANCER METASTATIC
     Dates: start: 20081211, end: 20081211
  2. NEULASTA [Concomitant]
     Indication: PROPHYLAXIS
  3. SYNTHROID [Concomitant]
  4. METFORMIN [Concomitant]
  5. BENAZEPRIL HYDROCHLORIDE [Concomitant]
  6. NORVASC [Concomitant]
  7. NEXIUM [Concomitant]
  8. NEULASTA [Concomitant]
  9. OXYCONTIN [Concomitant]

REACTIONS (6)
  - DEHYDRATION [None]
  - DIARRHOEA [None]
  - FEBRILE NEUTROPENIA [None]
  - NAUSEA [None]
  - SEPTIC SHOCK [None]
  - VOMITING [None]
